FAERS Safety Report 8809652 (Version 2)
Quarter: 2014Q3

REPORT INFORMATION
  Report Type: Report from Study
  Country: US (occurrence: US)
  Receive Date: 20120926
  Receipt Date: 20140901
  Transmission Date: 20150326
  Serious: Yes (Death, Other)
  Sender: FDA-Public Use
  Company Number: US-ROCHE-1125649

PATIENT
  Sex: Male

DRUGS (7)
  1. AVASTIN [Suspect]
     Active Substance: BEVACIZUMAB
     Indication: METASTATIC RENAL CELL CARCINOMA
  2. THALIDOMIDE [Concomitant]
     Active Substance: THALIDOMIDE
  3. IRESSA [Concomitant]
     Active Substance: GEFITINIB
  4. AVASTIN [Suspect]
     Active Substance: BEVACIZUMAB
     Indication: RENAL CANCER
     Dosage: DOSAGE REGIMEN: 5MG/KG
     Route: 042
  5. TAXOL [Concomitant]
     Active Substance: PACLITAXEL
  6. CARBOPLATIN. [Concomitant]
     Active Substance: CARBOPLATIN
  7. INTERLEUKIN 2 [Concomitant]
     Active Substance: ALDESLEUKIN

REACTIONS (4)
  - Death [Fatal]
  - Disease progression [Unknown]
  - Abdominal mass [Unknown]
  - Performance status decreased [Unknown]
